FAERS Safety Report 19126097 (Version 1)
Quarter: 2021Q2

REPORT INFORMATION
  Report Type: Spontaneous
  Country: US (occurrence: US)
  Receive Date: 20210413
  Receipt Date: 20210413
  Transmission Date: 20210717
  Serious: Yes (Other)
  Sender: FDA-Public Use
  Company Number: US-ACCORD-222005

PATIENT
  Age: 15 Year
  Sex: Male

DRUGS (7)
  1. ETOPOSIDE. [Suspect]
     Active Substance: ETOPOSIDE
     Indication: HAEMOPHAGOCYTIC LYMPHOHISTIOCYTOSIS
     Dosage: ON WEEK 1, 4, 6, 75 MG/M2 WEEK 2 (50% DOSE), 150 MG/M2 WEEK 5 (TWICE WEEKLY)
  2. METHOTREXATE. [Concomitant]
     Active Substance: METHOTREXATE
     Indication: NERVOUS SYSTEM DISORDER PROPHYLAXIS
     Dosage: ON WEEK 2, 3, 4, 5, 10 AND 11
     Route: 037
  3. DEXAMETHASONE. [Suspect]
     Active Substance: DEXAMETHASONE
     Indication: HAEMOPHAGOCYTIC LYMPHOHISTIOCYTOSIS
     Dosage: WEEK 5, 6, 10 MG/M2 WEEK 1, 2, 3, 4, 2.7 MG/M2 WEEK 7, 8, 10 MG/M2 WEEK 9?14
  4. POSACONAZOLE [Concomitant]
     Active Substance: POSACONAZOLE
     Indication: PROPHYLAXIS
  5. EMAPALUMAB [Suspect]
     Active Substance: EMAPALUMAB
     Indication: HAEMOPHAGOCYTIC LYMPHOHISTIOCYTOSIS
     Dosage: 2.7 MG/KG/DOSE TWICE A WEEK (WEEK 4 AND 5, 8, 9), 4.6 MG/KG TWICE A WEEK (WEEK 10 AND11)
  6. METHOTREXATE. [Concomitant]
     Active Substance: METHOTREXATE
     Indication: HAEMOPHAGOCYTIC LYMPHOHISTIOCYTOSIS
     Dosage: ON WEEK 2, 3, 4, 5, 10 AND 11
     Route: 037
  7. PENTAMIDINE [Concomitant]
     Active Substance: PENTAMIDINE
     Indication: PROPHYLAXIS

REACTIONS (3)
  - Musculoskeletal chest pain [Recovered/Resolved]
  - Staphylococcal bacteraemia [Recovered/Resolved]
  - Off label use [Unknown]
